FAERS Safety Report 18426928 (Version 1)
Quarter: 2020Q4

REPORT INFORMATION
  Report Type: Spontaneous
  Country: US (occurrence: US)
  Receive Date: 20201026
  Receipt Date: 20201026
  Transmission Date: 20210114
  Serious: No
  Sender: FDA-Public Use
  Company Number: None

PATIENT
  Age: 69 Year
  Sex: Female
  Weight: 61.02 kg

DRUGS (13)
  1. VALSARTAN. [Concomitant]
     Active Substance: VALSARTAN
  2. VERZENIO [Suspect]
     Active Substance: ABEMACICLIB
     Indication: BREAST CANCER
     Route: 048
     Dates: start: 20200922, end: 20200923
  3. ATORVASTATIN [Concomitant]
     Active Substance: ATORVASTATIN
  4. ESZOPICLONE. [Concomitant]
     Active Substance: ESZOPICLONE
  5. CELECOXIB. [Concomitant]
     Active Substance: CELECOXIB
  6. METOPROLOL TARTRATE. [Concomitant]
     Active Substance: METOPROLOL TARTRATE
  7. OMEPRAZOLE. [Concomitant]
     Active Substance: OMEPRAZOLE
  8. ASCORBATE CALCIUM [Concomitant]
  9. IVABRADINE [Concomitant]
     Active Substance: IVABRADINE
  10. ASPIRIN. [Concomitant]
     Active Substance: ASPIRIN
  11. SPIRONOLACTONE. [Concomitant]
     Active Substance: SPIRONOLACTONE
  12. LETROZOLE. [Concomitant]
     Active Substance: LETROZOLE
  13. OMEGA-3 FATTY ACIDS [Concomitant]
     Active Substance: OMEGA-3 FATTY ACIDS

REACTIONS (2)
  - Liver function test increased [None]
  - Fatigue [None]

NARRATIVE: CASE EVENT DATE: 20200923
